FAERS Safety Report 9629611 (Version 1)
Quarter: 2013Q4

REPORT INFORMATION
  Report Type: Report from Study
  Country: US (occurrence: US)
  Receive Date: 20131017
  Receipt Date: 20131017
  Transmission Date: 20140711
  Serious: Yes (Other)
  Sender: FDA-Public Use
  Company Number: US-US-EMD SERONO, INC.-7243310

PATIENT
  Age: 53 Year
  Sex: Female

DRUGS (2)
  1. REBIF [Suspect]
     Indication: MULTIPLE SCLEROSIS
     Route: 058
     Dates: start: 20031210, end: 20101122
  2. REBIF [Suspect]
     Route: 058
     Dates: start: 20130604, end: 201309

REACTIONS (2)
  - Juvenile melanoma benign [Unknown]
  - Blister [Recovering/Resolving]
